FAERS Safety Report 9988631 (Version 1)
Quarter: 2014Q1

REPORT INFORMATION
  Report Type: Report from Study
  Country: US (occurrence: US)
  Receive Date: 20140310
  Receipt Date: 20140310
  Transmission Date: 20141002
  Serious: Yes (Other)
  Sender: FDA-Public Use
  Company Number: US-ROCHE-1357006

PATIENT
  Sex: 0

DRUGS (2)
  1. CAPECITABINE [Suspect]
     Indication: NEUROENDOCRINE CARCINOMA
     Dosage: 28 DAY CYCLE
     Route: 048
  2. TEMOZOLOMIDE [Suspect]
     Indication: NEUROENDOCRINE CARCINOMA
     Dosage: 28 DAY CYCLE
     Route: 048

REACTIONS (4)
  - Lymphopenia [Unknown]
  - Thrombocytopenia [Unknown]
  - Diarrhoea [Unknown]
  - Hyperglycaemia [Unknown]
